FAERS Safety Report 20134816 (Version 1)
Quarter: 2021Q4

REPORT INFORMATION
  Report Type: Report from Study
  Country: US (occurrence: US)
  Receive Date: 20211201
  Receipt Date: 20211201
  Transmission Date: 20220303
  Serious: Yes (Hospitalization)
  Sender: FDA-Public Use
  Company Number: US-BRISTOL-MYERS SQUIBB COMPANY-BMS-2021-127252

PATIENT
  Age: 52 Year
  Sex: Female
  Weight: 67.8 kg

DRUGS (6)
  1. NIVOLUMAB [Suspect]
     Active Substance: NIVOLUMAB
     Indication: Anal cancer
     Dosage: UNK
     Route: 065
     Dates: start: 20210622
  2. NIVOLUMAB [Suspect]
     Active Substance: NIVOLUMAB
     Dosage: 480 MILLIGRAM
     Route: 065
     Dates: start: 20211026
  3. CARBOPLATIN [Suspect]
     Active Substance: CARBOPLATIN
     Indication: Anal cancer
     Dosage: UNK
     Route: 065
     Dates: start: 20210622
  4. CARBOPLATIN [Suspect]
     Active Substance: CARBOPLATIN
     Dosage: 350 MILLIGRAM
     Route: 065
     Dates: start: 20211026
  5. PACLITAXEL [Suspect]
     Active Substance: PACLITAXEL
     Indication: Anal cancer
     Dosage: UNK
     Route: 065
     Dates: start: 20210622
  6. PACLITAXEL [Suspect]
     Active Substance: PACLITAXEL
     Dosage: 135 MILLIGRAM
     Route: 065
     Dates: start: 20211026

REACTIONS (1)
  - Confusional state [Recovered/Resolved with Sequelae]

NARRATIVE: CASE EVENT DATE: 20211101
